FAERS Safety Report 7467814-5 (Version None)
Quarter: 2011Q2

REPORT INFORMATION
  Report Type: 
  Country: None (occurrence: None)
  Receive Date: 20110509
  Receipt Date: 20110105
  Transmission Date: 20111010
  Serious: No
  Sender: FDA-Public Use
  Company Number: US-ALEXION-A201100019

PATIENT
  Sex: Female

DRUGS (7)
  1. SOLIRIS [Suspect]
     Dosage: 900 MG, Q2W
     Route: 042
     Dates: start: 20080701, end: 20101101
  2. FOLIC ACID [Concomitant]
     Dosage: UNK
  3. SOLIRIS [Suspect]
     Indication: PAROXYSMAL NOCTURNAL HAEMOGLOBINURIA
     Dosage: 600 MG, QWX4
     Route: 042
     Dates: start: 20080612, end: 20080701
  4. SOLIRIS [Suspect]
     Dosage: 900 MG, Q3WKS
     Route: 042
     Dates: start: 20101202, end: 20101223
  5. SOLIRIS [Suspect]
     Dosage: 900 MG, Q2W
     Route: 042
     Dates: start: 20110106, end: 20110118
  6. TANDEM WITH IRON [Concomitant]
     Dosage: UNK
  7. SOLIRIS [Suspect]
     Dosage: 900 MG, Q12 DAYS
     Route: 042
     Dates: start: 20110118

REACTIONS (4)
  - ABDOMINAL PAIN [None]
  - SPEECH DISORDER [None]
  - MIGRAINE [None]
  - POLLAKIURIA [None]
